FAERS Safety Report 11500663 (Version 7)
Quarter: 2015Q4

REPORT INFORMATION
  Report Type: Spontaneous
  Country: US (occurrence: US)
  Receive Date: 20150914
  Receipt Date: 20151124
  Transmission Date: 20160304
  Serious: Yes (Hospitalization)
  Sender: FDA-Public Use
  Company Number: US-UNITED THERAPEUTICS-UNT-2015-010418

PATIENT
  Age: 69 Year
  Sex: Female
  Weight: 57.14 kg

DRUGS (4)
  1. REMODULIN [Suspect]
     Active Substance: TREPROSTINIL
     Dosage: UNK
     Route: 041
  2. ADEMPAS [Concomitant]
     Active Substance: RIOCIGUAT
     Indication: PRODUCT USED FOR UNKNOWN INDICATION
  3. REMODULIN [Suspect]
     Active Substance: TREPROSTINIL
     Indication: PULMONARY HYPERTENSION
     Dosage: 0.178 ?G/KG, CONTINUING
     Route: 041
     Dates: start: 20140403
  4. REMODULIN [Suspect]
     Active Substance: TREPROSTINIL
     Indication: PULMONARY ARTERIAL HYPERTENSION
     Dosage: 0.182 ?G/KG, CONTINUING
     Route: 041

REACTIONS (16)
  - Pulmonary arterial hypertension [Unknown]
  - Balance disorder [Unknown]
  - Dyspnoea [Unknown]
  - Fatigue [Unknown]
  - Renal failure [Unknown]
  - Acute respiratory failure [Not Recovered/Not Resolved]
  - Pleural effusion [Unknown]
  - Fluid overload [Unknown]
  - Injection site haemorrhage [Unknown]
  - Hypotension [Unknown]
  - Injection site discharge [Unknown]
  - Fall [Unknown]
  - Fluid retention [Unknown]
  - Right ventricular failure [Not Recovered/Not Resolved]
  - Pain [Unknown]
  - Contusion [Unknown]

NARRATIVE: CASE EVENT DATE: 20150820
